FAERS Safety Report 23853686 (Version 2)
Quarter: 2024Q3

REPORT INFORMATION
  Report Type: Spontaneous
  Country: JP (occurrence: JP)
  Receive Date: 20240514
  Receipt Date: 20240705
  Transmission Date: 20241017
  Serious: Yes (Other)
  Sender: SANDOZ
  Company Number: JP-002147023-NVSJ2024JP005559

PATIENT
  Age: 93 Year
  Sex: Female

DRUGS (2)
  1. EXELON PATCH [Suspect]
     Active Substance: RIVASTIGMINE
     Indication: Dementia Alzheimer^s type
     Dosage: 18 MG
     Route: 062
     Dates: end: 20240424
  2. EXELON PATCH [Suspect]
     Active Substance: RIVASTIGMINE
     Dosage: UNK, QD
     Route: 062

REACTIONS (1)
  - Delirium [Unknown]
